FAERS Safety Report 10435124 (Version 1)
Quarter: 2014Q3

REPORT INFORMATION
  Report Type: Spontaneous
  Country: ES (occurrence: None)
  Receive Date: 20140703
  Receipt Date: 20140703
  Transmission Date: 20150326
  Serious: Yes (Other)
  Sender: FDA-Public Use
  Company Number: AUR-APL-2014-06126

PATIENT
  Sex: Female

DRUGS (1)
  1. LEVOFLOXACIN 500 MG (LEVOFLOXACIN) [Suspect]
     Active Substance: LEVOFLOXACIN
     Indication: RESPIRATORY TRACT INFECTION

REACTIONS (4)
  - Respiratory disorder [None]
  - Fungal infection [None]
  - Bronchospasm [None]
  - Oral disorder [None]
